FAERS Safety Report 24924204 (Version 1)
Quarter: 2025Q1

REPORT INFORMATION
  Report Type: Spontaneous
  Country: CN (occurrence: CN)
  Receive Date: 20250204
  Receipt Date: 20250204
  Transmission Date: 20250409
  Serious: Yes (Death)
  Sender: MERCK
  Company Number: CN-009507513-2501CHN010560

PATIENT
  Age: 41 Year
  Sex: Male

DRUGS (1)
  1. IMIPENEM AND CILASTATIN [Suspect]
     Active Substance: CILASTATIN SODIUM\IMIPENEM
     Indication: Klebsiella infection
     Dosage: 1 GRAM, Q6H
     Route: 042

REACTIONS (1)
  - Drug ineffective [Fatal]
